FAERS Safety Report 26044682 (Version 2)
Quarter: 2025Q4

REPORT INFORMATION
  Report Type: Spontaneous
  Country: US (occurrence: US)
  Receive Date: 20251114
  Receipt Date: 20251229
  Transmission Date: 20260117
  Serious: No
  Sender: TOLMAR
  Company Number: US-Tolmar-TLM-2025-08441

PATIENT

DRUGS (3)
  1. ELIGARD [Suspect]
     Active Substance: LEUPROLIDE ACETATE
     Indication: Prostate cancer
     Dosage: SN: 6811283402169?GTIN: 00362935461500?BOX: 15371CUS EXP 12/2026?SYRINGE A: 15371AUS EXP 12/2026?SYR
  2. ELIGARD [Suspect]
     Active Substance: LEUPROLIDE ACETATE
     Dosage: REPLACEMENT DOSE
  3. DEVICE [Suspect]
     Active Substance: DEVICE
     Indication: Prostate cancer
     Dosage: SN: 6811283402169?GTIN: 00362935461500?BOX: 15371CUS EXP 12/2026?SYRINGE A: 15371AUS EXP 12/2026?SYR

REACTIONS (4)
  - Wrong technique in product usage process [Unknown]
  - Intercepted product preparation error [Unknown]
  - Device occlusion [Unknown]
  - Product quality issue [Unknown]
